FAERS Safety Report 7603061-1 (Version None)
Quarter: 2011Q3

REPORT INFORMATION
  Report Type: 
  Country: None (occurrence: None)
  Receive Date: 20110711
  Receipt Date: 20110711
  Transmission Date: 20111222
  Serious: No
  Sender: FDA-Public Use
  Company Number: None

PATIENT
  Sex: Female
  Weight: 87.5442 kg

DRUGS (1)
  1. SIMVASTATIN [Suspect]
     Indication: BLOOD CHOLESTEROL INCREASED
     Dosage: 80 MG 1 TAB PO
     Route: 048
     Dates: start: 20101020, end: 20110621

REACTIONS (3)
  - MYALGIA [None]
  - PAIN IN EXTREMITY [None]
  - MUSCLE SPASMS [None]
